FAERS Safety Report 17022021 (Version 2)
Quarter: 2019Q4

REPORT INFORMATION
  Report Type: Spontaneous
  Country: SK (occurrence: SI)
  Receive Date: 20191112
  Receipt Date: 20191122
  Transmission Date: 20200122
  Serious: Yes (Other)
  Sender: FDA-Public Use
  Company Number: SK-MYLANLABS-2019M1056336

PATIENT
  Age: 76 Year
  Sex: Female

DRUGS (9)
  1. IBANDRONSKA KISLINA MYLAN 150 MG FILMSKO OBLO?ENE TABLETE [Suspect]
     Active Substance: IBANDRONATE SODIUM
     Dosage: 150 MILLIGRAM, MONTHLY
  2. DENOSUMAB [Concomitant]
     Active Substance: DENOSUMAB
     Dosage: 60 MILLIGRAM PER 6 MONTHS
  3. METHYLPREDNISOLONE. [Suspect]
     Active Substance: METHYLPREDNISOLONE
     Indication: POLYMYALGIA RHEUMATICA
     Dosage: 16 MILLIGRAM, QD,FOR FIRST 3 WEEKS, LATER GRADUALLY LOWER DOSES
     Route: 048
     Dates: start: 2013
  4. METHYLPREDNISOLONE. [Suspect]
     Active Substance: METHYLPREDNISOLONE
     Dosage: DAILY (FOR 7 MONTHS PER OS DAILY AT DAILY DOSES HIGHER THAN 4 MG
     Route: 048
  5. CHOLECALCIFEROL [Concomitant]
     Active Substance: CHOLECALCIFEROL
     Dosage: 14.000 PER WEEK
     Route: 048
     Dates: start: 201805
  6. CALCIUM CARBONATE. [Suspect]
     Active Substance: CALCIUM CARBONATE
     Indication: OSTEOPOROSIS PROPHYLAXIS
     Dosage: 1 GRAM, QD
  7. IBANDRONSKA KISLINA MYLAN 150 MG FILMSKO OBLO?ENE TABLETE [Suspect]
     Active Substance: IBANDRONATE SODIUM
     Indication: OSTEOPOROSIS PROPHYLAXIS
     Dosage: 1 DOSAGE FORM, QD
     Route: 048
     Dates: end: 201805
  8. ALFACALCIDOL [Suspect]
     Active Substance: ALFACALCIDOL
     Indication: OSTEOPOROSIS PROPHYLAXIS
     Dosage: 0.5 MICROGRAM, QD
     Dates: end: 201805
  9. TERIPARATIDE [Concomitant]
     Active Substance: TERIPARATIDE
     Dosage: UNK
     Dates: start: 201805, end: 201806

REACTIONS (2)
  - Osteoporotic fracture [Unknown]
  - Drug ineffective [Unknown]

NARRATIVE: CASE EVENT DATE: 201710
